FAERS Safety Report 7721637-8 (Version None)
Quarter: 2011Q3

REPORT INFORMATION
  Report Type: 
  Country: None (occurrence: None)
  Receive Date: 20110831
  Receipt Date: 20110817
  Transmission Date: 20111222
  Serious: Yes (Hospitalization)
  Sender: FDA-Public Use
  Company Number: US-GLAXOSMITHKLINE-A0747387A

PATIENT
  Age: 59 Year
  Sex: Male
  Weight: 105.5 kg

DRUGS (13)
  1. ZOCOR [Concomitant]
  2. LASIX [Concomitant]
  3. CLONIDINE [Concomitant]
  4. VASOTEC [Concomitant]
  5. LISINOPRIL [Concomitant]
  6. AMARYL [Concomitant]
  7. NOVOLIN 70/30 [Concomitant]
  8. ISORDIL [Concomitant]
  9. ULTRACET [Concomitant]
  10. LYRICA [Concomitant]
  11. AVANDIA [Suspect]
     Indication: TYPE 2 DIABETES MELLITUS
     Dosage: 4MG TWICE PER DAY
     Route: 048
     Dates: start: 20070101, end: 20070701
  12. CARTIA XT [Concomitant]
  13. VYTORIN [Concomitant]

REACTIONS (5)
  - CEREBROVASCULAR ACCIDENT [None]
  - MYOCARDIAL INFARCTION [None]
  - HYPERTENSIVE CRISIS [None]
  - INFARCTION [None]
  - VISION BLURRED [None]
